FAERS Safety Report 25402627 (Version 1)
Quarter: 2025Q2

REPORT INFORMATION
  Report Type: Report from Study
  Country: FR (occurrence: FR)
  Receive Date: 20250605
  Receipt Date: 20250605
  Transmission Date: 20250717
  Serious: Yes (Hospitalization, Other)
  Sender: MYLAN
  Company Number: FR-SA-2025SA026257

PATIENT
  Age: 86 Year
  Sex: Female
  Weight: 58.2 kg

DRUGS (96)
  1. DEXAMETHASONE [Suspect]
     Active Substance: DEXAMETHASONE
     Indication: Plasma cell myeloma refractory
     Dosage: 20 MILLIGRAM, QW
     Route: 065
     Dates: start: 20211230, end: 20220127
  2. DEXAMETHASONE [Suspect]
     Active Substance: DEXAMETHASONE
     Dosage: 20 MILLIGRAM, QW
     Dates: start: 20211230, end: 20220127
  3. DEXAMETHASONE [Suspect]
     Active Substance: DEXAMETHASONE
     Dosage: 20 MILLIGRAM, QW
     Dates: start: 20211230, end: 20220127
  4. DEXAMETHASONE [Suspect]
     Active Substance: DEXAMETHASONE
     Dosage: 20 MILLIGRAM, QW
     Route: 065
     Dates: start: 20211230, end: 20220127
  5. DEXAMETHASONE [Suspect]
     Active Substance: DEXAMETHASONE
     Dosage: 40 MILLIGRAM, QW
     Route: 065
     Dates: start: 20220128, end: 20220224
  6. DEXAMETHASONE [Suspect]
     Active Substance: DEXAMETHASONE
     Dosage: 40 MILLIGRAM, QW
     Dates: start: 20220128, end: 20220224
  7. DEXAMETHASONE [Suspect]
     Active Substance: DEXAMETHASONE
     Dosage: 40 MILLIGRAM, QW
     Dates: start: 20220128, end: 20220224
  8. DEXAMETHASONE [Suspect]
     Active Substance: DEXAMETHASONE
     Dosage: 40 MILLIGRAM, QW
     Route: 065
     Dates: start: 20220128, end: 20220224
  9. DEXAMETHASONE [Suspect]
     Active Substance: DEXAMETHASONE
     Dosage: 40 MILLIGRAM, QW
     Dates: start: 20220225, end: 20220324
  10. DEXAMETHASONE [Suspect]
     Active Substance: DEXAMETHASONE
     Dosage: 40 MILLIGRAM, QW
     Dates: start: 20220225, end: 20220324
  11. DEXAMETHASONE [Suspect]
     Active Substance: DEXAMETHASONE
     Dosage: 40 MILLIGRAM, QW
     Route: 065
     Dates: start: 20220225, end: 20220324
  12. DEXAMETHASONE [Suspect]
     Active Substance: DEXAMETHASONE
     Dosage: 40 MILLIGRAM, QW
     Route: 065
     Dates: start: 20220225, end: 20220324
  13. DEXAMETHASONE [Suspect]
     Active Substance: DEXAMETHASONE
     Dosage: 40 MILLIGRAM, QW
     Dates: start: 20220325, end: 20220422
  14. DEXAMETHASONE [Suspect]
     Active Substance: DEXAMETHASONE
     Dosage: 40 MILLIGRAM, QW
     Dates: start: 20220325, end: 20220422
  15. DEXAMETHASONE [Suspect]
     Active Substance: DEXAMETHASONE
     Dosage: 40 MILLIGRAM, QW
     Route: 065
     Dates: start: 20220325, end: 20220422
  16. DEXAMETHASONE [Suspect]
     Active Substance: DEXAMETHASONE
     Dosage: 40 MILLIGRAM, QW
     Route: 065
     Dates: start: 20220325, end: 20220422
  17. ISATUXIMAB [Suspect]
     Active Substance: ISATUXIMAB
     Indication: Plasma cell myeloma refractory
     Dosage: 650 MILLIGRAM, QW
     Route: 065
     Dates: start: 20211230, end: 20220127
  18. ISATUXIMAB [Suspect]
     Active Substance: ISATUXIMAB
     Dosage: 650 MILLIGRAM, QW
     Dates: start: 20211230, end: 20220127
  19. ISATUXIMAB [Suspect]
     Active Substance: ISATUXIMAB
     Dosage: 650 MILLIGRAM, QW
     Dates: start: 20211230, end: 20220127
  20. ISATUXIMAB [Suspect]
     Active Substance: ISATUXIMAB
     Dosage: 650 MILLIGRAM, QW
     Route: 065
     Dates: start: 20211230, end: 20220127
  21. ISATUXIMAB [Suspect]
     Active Substance: ISATUXIMAB
     Dosage: 650 MILLIGRAM, BIWEEKLY
     Route: 065
     Dates: start: 20220128, end: 20220224
  22. ISATUXIMAB [Suspect]
     Active Substance: ISATUXIMAB
     Dosage: 650 MILLIGRAM, BIWEEKLY
     Dates: start: 20220128, end: 20220224
  23. ISATUXIMAB [Suspect]
     Active Substance: ISATUXIMAB
     Dosage: 650 MILLIGRAM, BIWEEKLY
     Dates: start: 20220128, end: 20220224
  24. ISATUXIMAB [Suspect]
     Active Substance: ISATUXIMAB
     Dosage: 650 MILLIGRAM, BIWEEKLY
     Route: 065
     Dates: start: 20220128, end: 20220224
  25. ISATUXIMAB [Suspect]
     Active Substance: ISATUXIMAB
     Dosage: 600 MILLIGRAM, BIWEEKLY
     Dates: start: 20220225, end: 20220324
  26. ISATUXIMAB [Suspect]
     Active Substance: ISATUXIMAB
     Dosage: 600 MILLIGRAM, BIWEEKLY
     Dates: start: 20220225, end: 20220324
  27. ISATUXIMAB [Suspect]
     Active Substance: ISATUXIMAB
     Dosage: 600 MILLIGRAM, BIWEEKLY
     Route: 065
     Dates: start: 20220225, end: 20220324
  28. ISATUXIMAB [Suspect]
     Active Substance: ISATUXIMAB
     Dosage: 600 MILLIGRAM, BIWEEKLY
     Route: 065
     Dates: start: 20220225, end: 20220324
  29. ISATUXIMAB [Suspect]
     Active Substance: ISATUXIMAB
     Dosage: 600 MILLIGRAM, BIWEEKLY
     Dates: start: 20220325, end: 20220422
  30. ISATUXIMAB [Suspect]
     Active Substance: ISATUXIMAB
     Dosage: 600 MILLIGRAM, BIWEEKLY
     Dates: start: 20220325, end: 20220422
  31. ISATUXIMAB [Suspect]
     Active Substance: ISATUXIMAB
     Dosage: 600 MILLIGRAM, BIWEEKLY
     Route: 065
     Dates: start: 20220325, end: 20220422
  32. ISATUXIMAB [Suspect]
     Active Substance: ISATUXIMAB
     Dosage: 600 MILLIGRAM, BIWEEKLY
     Route: 065
     Dates: start: 20220325, end: 20220422
  33. POMALIDOMIDE [Suspect]
     Active Substance: POMALIDOMIDE
     Indication: Plasma cell myeloma refractory
     Dosage: 2 MILLIGRAM, QD
     Route: 065
     Dates: start: 20211230, end: 20220127
  34. POMALIDOMIDE [Suspect]
     Active Substance: POMALIDOMIDE
     Dosage: 2 MILLIGRAM, QD
     Dates: start: 20211230, end: 20220127
  35. POMALIDOMIDE [Suspect]
     Active Substance: POMALIDOMIDE
     Dosage: 2 MILLIGRAM, QD
     Dates: start: 20211230, end: 20220127
  36. POMALIDOMIDE [Suspect]
     Active Substance: POMALIDOMIDE
     Dosage: 2 MILLIGRAM, QD
     Route: 065
     Dates: start: 20211230, end: 20220127
  37. POMALIDOMIDE [Suspect]
     Active Substance: POMALIDOMIDE
     Dosage: 4 MILLIGRAM, QD
     Route: 065
     Dates: start: 20220128, end: 20220224
  38. POMALIDOMIDE [Suspect]
     Active Substance: POMALIDOMIDE
     Dosage: 4 MILLIGRAM, QD
     Dates: start: 20220128, end: 20220224
  39. POMALIDOMIDE [Suspect]
     Active Substance: POMALIDOMIDE
     Dosage: 4 MILLIGRAM, QD
     Dates: start: 20220128, end: 20220224
  40. POMALIDOMIDE [Suspect]
     Active Substance: POMALIDOMIDE
     Dosage: 4 MILLIGRAM, QD
     Route: 065
     Dates: start: 20220128, end: 20220224
  41. POMALIDOMIDE [Suspect]
     Active Substance: POMALIDOMIDE
     Dosage: 2 MILLIGRAM, QD
     Dates: start: 20220225, end: 20220324
  42. POMALIDOMIDE [Suspect]
     Active Substance: POMALIDOMIDE
     Dosage: 2 MILLIGRAM, QD
     Dates: start: 20220225, end: 20220324
  43. POMALIDOMIDE [Suspect]
     Active Substance: POMALIDOMIDE
     Dosage: 2 MILLIGRAM, QD
     Route: 065
     Dates: start: 20220225, end: 20220324
  44. POMALIDOMIDE [Suspect]
     Active Substance: POMALIDOMIDE
     Dosage: 2 MILLIGRAM, QD
     Route: 065
     Dates: start: 20220225, end: 20220324
  45. POMALIDOMIDE [Suspect]
     Active Substance: POMALIDOMIDE
     Dosage: 2 MILLIGRAM, QD
     Dates: start: 20220325, end: 20220415
  46. POMALIDOMIDE [Suspect]
     Active Substance: POMALIDOMIDE
     Dosage: 2 MILLIGRAM, QD
     Dates: start: 20220325, end: 20220415
  47. POMALIDOMIDE [Suspect]
     Active Substance: POMALIDOMIDE
     Dosage: 2 MILLIGRAM, QD
     Route: 065
     Dates: start: 20220325, end: 20220415
  48. POMALIDOMIDE [Suspect]
     Active Substance: POMALIDOMIDE
     Dosage: 2 MILLIGRAM, QD
     Route: 065
     Dates: start: 20220325, end: 20220415
  49. LERCANIDIPINE [Concomitant]
     Active Substance: LERCANIDIPINE
     Indication: Hypertension
  50. LERCANIDIPINE [Concomitant]
     Active Substance: LERCANIDIPINE
     Route: 065
  51. LERCANIDIPINE [Concomitant]
     Active Substance: LERCANIDIPINE
     Route: 065
  52. LERCANIDIPINE [Concomitant]
     Active Substance: LERCANIDIPINE
  53. LUMIGAN [Concomitant]
     Active Substance: BIMATOPROST
  54. LUMIGAN [Concomitant]
     Active Substance: BIMATOPROST
     Route: 065
  55. LUMIGAN [Concomitant]
     Active Substance: BIMATOPROST
     Route: 065
  56. LUMIGAN [Concomitant]
     Active Substance: BIMATOPROST
  57. VALACYCLOVIR HYDROCHLORIDE [Concomitant]
     Active Substance: VALACYCLOVIR HYDROCHLORIDE
     Indication: Antiviral prophylaxis
  58. VALACYCLOVIR HYDROCHLORIDE [Concomitant]
     Active Substance: VALACYCLOVIR HYDROCHLORIDE
     Route: 065
  59. VALACYCLOVIR HYDROCHLORIDE [Concomitant]
     Active Substance: VALACYCLOVIR HYDROCHLORIDE
     Route: 065
  60. VALACYCLOVIR HYDROCHLORIDE [Concomitant]
     Active Substance: VALACYCLOVIR HYDROCHLORIDE
  61. BACTRIM [Concomitant]
     Active Substance: SULFAMETHOXAZOLE\TRIMETHOPRIM
     Indication: Antibiotic prophylaxis
  62. BACTRIM [Concomitant]
     Active Substance: SULFAMETHOXAZOLE\TRIMETHOPRIM
     Route: 065
  63. BACTRIM [Concomitant]
     Active Substance: SULFAMETHOXAZOLE\TRIMETHOPRIM
     Route: 065
  64. BACTRIM [Concomitant]
     Active Substance: SULFAMETHOXAZOLE\TRIMETHOPRIM
  65. LEUCOVORIN CALCIUM [Concomitant]
     Active Substance: LEUCOVORIN CALCIUM
  66. LEUCOVORIN CALCIUM [Concomitant]
     Active Substance: LEUCOVORIN CALCIUM
     Route: 065
  67. LEUCOVORIN CALCIUM [Concomitant]
     Active Substance: LEUCOVORIN CALCIUM
     Route: 065
  68. LEUCOVORIN CALCIUM [Concomitant]
     Active Substance: LEUCOVORIN CALCIUM
  69. GAVISCON [Concomitant]
     Active Substance: ALUMINUM HYDROXIDE\MAGNESIUM CARBONATE
     Indication: Antacid therapy
  70. GAVISCON [Concomitant]
     Active Substance: ALUMINUM HYDROXIDE\MAGNESIUM CARBONATE
     Route: 065
  71. GAVISCON [Concomitant]
     Active Substance: ALUMINUM HYDROXIDE\MAGNESIUM CARBONATE
     Route: 065
  72. GAVISCON [Concomitant]
     Active Substance: ALUMINUM HYDROXIDE\MAGNESIUM CARBONATE
  73. DOLIPRANE [Concomitant]
     Active Substance: ACETAMINOPHEN
     Indication: Antipyresis
  74. DOLIPRANE [Concomitant]
     Active Substance: ACETAMINOPHEN
     Route: 065
  75. DOLIPRANE [Concomitant]
     Active Substance: ACETAMINOPHEN
     Route: 065
  76. DOLIPRANE [Concomitant]
     Active Substance: ACETAMINOPHEN
  77. CHOLECALCIFEROL [Concomitant]
     Active Substance: CHOLECALCIFEROL
     Indication: Vitamin supplementation
  78. CHOLECALCIFEROL [Concomitant]
     Active Substance: CHOLECALCIFEROL
     Route: 065
  79. CHOLECALCIFEROL [Concomitant]
     Active Substance: CHOLECALCIFEROL
     Route: 065
  80. CHOLECALCIFEROL [Concomitant]
     Active Substance: CHOLECALCIFEROL
  81. LOVENOX [Concomitant]
     Active Substance: ENOXAPARIN SODIUM
     Indication: Anticoagulant therapy
  82. LOVENOX [Concomitant]
     Active Substance: ENOXAPARIN SODIUM
     Route: 065
  83. LOVENOX [Concomitant]
     Active Substance: ENOXAPARIN SODIUM
     Route: 065
  84. LOVENOX [Concomitant]
     Active Substance: ENOXAPARIN SODIUM
  85. TRAMADOL [Concomitant]
     Active Substance: TRAMADOL
     Indication: Pain prophylaxis
  86. TRAMADOL [Concomitant]
     Active Substance: TRAMADOL
     Route: 065
  87. TRAMADOL [Concomitant]
     Active Substance: TRAMADOL
     Route: 065
  88. TRAMADOL [Concomitant]
     Active Substance: TRAMADOL
  89. DEXCHLORPHENIRAMINE [Concomitant]
     Active Substance: DEXCHLORPHENIRAMINE
     Dosage: UNK UNK, QW
     Dates: start: 20211229
  90. DEXCHLORPHENIRAMINE [Concomitant]
     Active Substance: DEXCHLORPHENIRAMINE
     Dosage: UNK UNK, QW
     Route: 065
     Dates: start: 20211229
  91. DEXCHLORPHENIRAMINE [Concomitant]
     Active Substance: DEXCHLORPHENIRAMINE
     Dosage: UNK UNK, QW
     Route: 065
     Dates: start: 20211229
  92. DEXCHLORPHENIRAMINE [Concomitant]
     Active Substance: DEXCHLORPHENIRAMINE
     Dosage: UNK UNK, QW
     Dates: start: 20211229
  93. ACETAMINOPHEN [Concomitant]
     Active Substance: ACETAMINOPHEN
     Dosage: UNK UNK, QW
     Dates: start: 20211229
  94. ACETAMINOPHEN [Concomitant]
     Active Substance: ACETAMINOPHEN
     Dosage: UNK UNK, QW
     Route: 065
     Dates: start: 20211229
  95. ACETAMINOPHEN [Concomitant]
     Active Substance: ACETAMINOPHEN
     Dosage: UNK UNK, QW
     Route: 065
     Dates: start: 20211229
  96. ACETAMINOPHEN [Concomitant]
     Active Substance: ACETAMINOPHEN
     Dosage: UNK UNK, QW
     Dates: start: 20211229

REACTIONS (6)
  - COVID-19 [Recovered/Resolved]
  - Atrial fibrillation [Recovering/Resolving]
  - Asthenia [Recovered/Resolved]
  - Vomiting [Recovered/Resolved]
  - Nausea [Recovered/Resolved]
  - Dyspnoea [Recovered/Resolved]

NARRATIVE: CASE EVENT DATE: 20220503
